FAERS Safety Report 9601635 (Version 3)
Quarter: 2013Q4

REPORT INFORMATION
  Report Type: Spontaneous
  Country: DE (occurrence: DE)
  Receive Date: 20131007
  Receipt Date: 20131216
  Transmission Date: 20140711
  Serious: Yes (Hospitalization, Other)
  Sender: FDA-Public Use
  Company Number: DE-BRISTOL-MYERS SQUIBB COMPANY-19394535

PATIENT
  Age: 71 Year
  Sex: Female
  Weight: 88 kg

DRUGS (2)
  1. ELIQUIS [Suspect]
     Indication: THROMBOSIS PROPHYLAXIS
     Route: 048
     Dates: start: 20130625, end: 20130730
  2. SIMVASTATIN [Suspect]
     Route: 048

REACTIONS (3)
  - Blood bilirubin increased [Recovering/Resolving]
  - Jaundice hepatocellular [Recovering/Resolving]
  - Transaminases increased [Recovering/Resolving]
